FAERS Safety Report 24824332 (Version 1)
Quarter: 2025Q1

REPORT INFORMATION
  Report Type: Report from Study
  Country: US (occurrence: US)
  Receive Date: 20250109
  Receipt Date: 20250109
  Transmission Date: 20250409
  Serious: Yes (Other)
  Sender: ALEXION PHARMACEUTICALS
  Company Number: US-AstraZeneca-CH-00779551A

PATIENT
  Age: 62 Year

DRUGS (1)
  1. BENRALIZUMAB [Suspect]
     Active Substance: BENRALIZUMAB
     Indication: Asthma
     Dosage: 30 MILLIGRAM, Q8W

REACTIONS (9)
  - Aspergillus infection [Unknown]
  - Laryngitis [Unknown]
  - Dysphonia [Unknown]
  - Biopsy [Unknown]
  - Bacterial infection [Unknown]
  - Chest scan [Unknown]
  - Sputum culture [Unknown]
  - Nodule [Unknown]
  - Positron emission tomogram [Unknown]
